FAERS Safety Report 4944499-0 (Version None)
Quarter: 2006Q1

REPORT INFORMATION
  Report Type: 
  Country: None (occurrence: None)
  Receive Date: 20060315
  Receipt Date: 20060307
  Transmission Date: 20060701
  Serious: Yes (Hospitalization)
  Sender: FDA-Public Use
  Company Number: US-SANOFI-SYNTHELABO-A03200601233

PATIENT
  Sex: Male
  Weight: 64.9 kg

DRUGS (4)
  1. ELOXATIN [Suspect]
     Indication: COLON CANCER METASTATIC
     Route: 042
     Dates: start: 20060302, end: 20060302
  2. FLUOROURACIL [Concomitant]
     Route: 042
  3. AVASTIN [Concomitant]
     Route: 042
  4. LEUCOVORIN CALCIUM [Concomitant]
     Route: 042

REACTIONS (4)
  - BLOOD PRESSURE DECREASED [None]
  - DEVICE FAILURE [None]
  - HYPERSENSITIVITY [None]
  - PRURITUS GENERALISED [None]
